FAERS Safety Report 5993328-5 (Version None)
Quarter: 2008Q4

REPORT INFORMATION
  Report Type: 
  Country: None (occurrence: None)
  Receive Date: 20081212
  Receipt Date: 20081205
  Transmission Date: 20090506
  Serious: Yes (Death, Hospitalization)
  Sender: FDA-Public Use
  Company Number: FR-BAYER-200831956GPV

PATIENT
  Age: 67 Year
  Sex: Male

DRUGS (6)
  1. MABCAMPATH [Suspect]
     Indication: B-CELL SMALL LYMPHOCYTIC LYMPHOMA
     Route: 058
     Dates: start: 20080204, end: 20080206
  2. MABCAMPATH [Suspect]
     Route: 058
     Dates: start: 20080630, end: 20080702
  3. FLUDARA [Suspect]
     Indication: B-CELL SMALL LYMPHOCYTIC LYMPHOMA
     Route: 048
     Dates: start: 20080630, end: 20080702
  4. FLUDARA [Suspect]
     Route: 048
     Dates: start: 20080204, end: 20080206
  5. ENDOXAN [Suspect]
     Indication: B-CELL SMALL LYMPHOCYTIC LYMPHOMA
     Route: 048
     Dates: start: 20080630, end: 20080702
  6. ENDOXAN [Suspect]
     Route: 048
     Dates: start: 20080204, end: 20080206

REACTIONS (4)
  - CARDIO-RESPIRATORY ARREST [None]
  - FEBRILE NEUTROPENIA [None]
  - PNEUMONIA [None]
  - THROMBOCYTOPENIA [None]
